FAERS Safety Report 8062214-1 (Version None)
Quarter: 2012Q1

REPORT INFORMATION
  Report Type: 
  Country: None (occurrence: None)
  Receive Date: 20120120
  Receipt Date: 20120120
  Transmission Date: 20120608
  Serious: Yes (Other)
  Sender: FDA-Public Use
  Company Number: None

PATIENT
  Age: 52 Year
  Sex: Male

DRUGS (3)
  1. PERCOCET [Concomitant]
  2. VYVANSE [Concomitant]
  3. INCIVEK [Suspect]
     Indication: HEPATITIS C
     Dosage: 750MG (2 TABS) 3 TIMES A DAY BY MOUTH
     Route: 048
     Dates: start: 20111114

REACTIONS (2)
  - SKIN INJURY [None]
  - DRY SKIN [None]
